FAERS Safety Report 6572171-2 (Version None)
Quarter: 2010Q1

REPORT INFORMATION
  Report Type: 
  Country: None (occurrence: None)
  Receive Date: 20100205
  Receipt Date: 20100201
  Transmission Date: 20100710
  Serious: Yes (Death)
  Sender: FDA-Public Use
  Company Number: B0629323A

PATIENT
  Sex: Female
  Weight: 65 kg

DRUGS (4)
  1. ARIXTRA [Suspect]
     Indication: PHLEBITIS
     Dosage: 7.5MG PER DAY
     Route: 058
     Dates: start: 20091228, end: 20091230
  2. PREVISCAN [Suspect]
     Indication: PHLEBITIS
     Dosage: 20MG PER DAY
     Route: 048
     Dates: start: 20091226, end: 20091230
  3. CALCIPARINE [Suspect]
     Indication: PHLEBITIS
     Dosage: .6ML TWICE PER DAY
     Route: 058
     Dates: start: 20091226, end: 20091227
  4. CORTANCYL [Concomitant]
     Indication: RHEUMATOID ARTHRITIS
     Route: 065

REACTIONS (5)
  - ABDOMINAL PAIN LOWER [None]
  - ABDOMINAL WALL HAEMATOMA [None]
  - DRUG INEFFECTIVE [None]
  - PALLOR [None]
  - SHOCK HAEMORRHAGIC [None]
